FAERS Safety Report 7206756-7 (Version None)
Quarter: 2011Q1

REPORT INFORMATION
  Report Type: 
  Country: None (occurrence: None)
  Receive Date: 20110103
  Receipt Date: 20101223
  Transmission Date: 20110831
  Serious: Yes (Other)
  Sender: FDA-Public Use
  Company Number: PHHY2010US88729

PATIENT
  Age: 55 Year
  Sex: Male
  Weight: 68 kg

DRUGS (2)
  1. DOXIL [Concomitant]
  2. ZOMETA [Suspect]
     Indication: BREAST CANCER METASTATIC
     Dosage: 4 MG, UNK
     Route: 042
     Dates: start: 20090107, end: 20101021

REACTIONS (2)
  - PAIN [None]
  - OSTEONECROSIS OF JAW [None]
